FAERS Safety Report 19158557 (Version 1)
Quarter: 2021Q2

REPORT INFORMATION
  Report Type: Spontaneous
  Country: US (occurrence: US)
  Receive Date: 20210420
  Receipt Date: 20210420
  Transmission Date: 20210717
  Serious: Yes (Other)
  Sender: FDA-Public Use
  Company Number: None

PATIENT
  Age: 43 Year
  Sex: Female
  Weight: 64.4 kg

DRUGS (9)
  1. SERTRALINE [Concomitant]
     Active Substance: SERTRALINE HYDROCHLORIDE
  2. VITAMIN B12 [Concomitant]
     Active Substance: CYANOCOBALAMIN
  3. TYLENOL [Concomitant]
     Active Substance: ACETAMINOPHEN
  4. CAPECITABINE. [Suspect]
     Active Substance: CAPECITABINE
     Indication: BREAST CANCER
     Route: 048
     Dates: start: 20201107, end: 20210217
  5. VITAMIN D [Concomitant]
     Active Substance: VITAMIN D NOS
  6. ASPIRIN. [Concomitant]
     Active Substance: ASPIRIN
  7. FAMOTIDINE. [Concomitant]
     Active Substance: FAMOTIDINE
  8. MULTIVITAMIN [Concomitant]
     Active Substance: VITAMINS
  9. MELATONIN [Concomitant]
     Active Substance: MELATONIN

REACTIONS (6)
  - Palmar-plantar erythrodysaesthesia syndrome [None]
  - Diarrhoea [None]
  - Therapy change [None]
  - Nausea [None]
  - Abdominal discomfort [None]
  - Skin exfoliation [None]

NARRATIVE: CASE EVENT DATE: 20201119
